FAERS Safety Report 6546550-3 (Version None)
Quarter: 2010Q1

REPORT INFORMATION
  Report Type: 
  Country: None (occurrence: None)
  Receive Date: 20100122
  Receipt Date: 20100112
  Transmission Date: 20100710
  Serious: Yes (Death, Life-Threatening, Hospitalization)
  Sender: FDA-Public Use
  Company Number: DE-AMGEN-US380140

PATIENT
  Age: 69 Year
  Sex: Female
  Weight: 110 kg

DRUGS (1)
  1. ENBREL [Suspect]
     Indication: PSORIASIS
     Dosage: VARIOUS (1X25 MG PER WEEK, 2X25MG PER WEEK, 1X50MG PER WEEK)
     Route: 058
     Dates: start: 20080310, end: 20090424

REACTIONS (10)
  - CARDIAC FAILURE [None]
  - CIRRHOSIS ALCOHOLIC [None]
  - CONCOMITANT DISEASE AGGRAVATED [None]
  - DYSPNOEA [None]
  - GASTRIC VARICES HAEMORRHAGE [None]
  - HAEMORRHAGIC ANAEMIA [None]
  - MULTI-ORGAN FAILURE [None]
  - OESOPHAGEAL VARICES HAEMORRHAGE [None]
  - PNEUMONIA ASPIRATION [None]
  - STAPHYLOCOCCAL SEPSIS [None]
